FAERS Safety Report 15335361 (Version 2)
Quarter: 2018Q3

REPORT INFORMATION
  Report Type: Spontaneous
  Country: JP (occurrence: JP)
  Receive Date: 20180830
  Receipt Date: 20180906
  Transmission Date: 20181010
  Serious: Yes (Hospitalization)
  Sender: FDA-Public Use
  Company Number: PHJP2018JP015510

PATIENT
  Sex: Male

DRUGS (21)
  1. CARBIDOPA MONOHYDRATE [Concomitant]
     Active Substance: CARBIDOPA
     Indication: PARKINSON^S DISEASE
     Dosage: 100 MG, 5QD
     Route: 048
  2. CARBIDOPA MONOHYDRATE [Concomitant]
     Active Substance: CARBIDOPA
     Dosage: UNK
     Route: 048
  3. CARBIDOPA MONOHYDRATE [Concomitant]
     Active Substance: CARBIDOPA
     Dosage: 36 MG/H FROM 0500 HRS AFTER WAKING UP, 38 MG/H FROM 1130 HRS, 4 MG/H FROM 1700 TO BEDITME AT 2100 HR
     Route: 048
  4. CARBIDOPA MONOHYDRATE [Concomitant]
     Active Substance: CARBIDOPA
     Dosage: 60 MG AT WAKING UP, ADDED 36 MG AT THE TIME OF OFF?SYMPTOM
     Route: 065
  5. CARBIDOPA MONOHYDRATE [Concomitant]
     Active Substance: CARBIDOPA
     Dosage: 740 MG
     Route: 048
  6. LEVODOPA?CARBIDOPA [Concomitant]
     Active Substance: CARBIDOPA\LEVODOPA
     Indication: PARKINSON^S DISEASE
     Route: 065
  7. AMANTADINE. [Suspect]
     Active Substance: AMANTADINE HYDROCHLORIDE
     Indication: PARKINSON^S DISEASE
     Dosage: 100 MG
     Route: 048
  8. CARBIDOPA MONOHYDRATE [Concomitant]
     Active Substance: CARBIDOPA
     Dosage: 100 MG, TID
     Route: 048
  9. CARBIDOPA MONOHYDRATE [Concomitant]
     Active Substance: CARBIDOPA
     Dosage: UNK
     Route: 048
  10. CARBIDOPA MONOHYDRATE [Concomitant]
     Active Substance: CARBIDOPA
     Dosage: DISCONTINUED THE DOSE AT WAKING UP, MAINTENANCE DOSE AT 36 MG/H
     Route: 065
  11. CARBIDOPA MONOHYDRATE [Concomitant]
     Active Substance: CARBIDOPA
     Dosage: 36 MG/HR
     Route: 065
  12. CARBIDOPA MONOHYDRATE [Concomitant]
     Active Substance: CARBIDOPA
     Dosage: 150 MG
     Route: 048
  13. CARBIDOPA MONOHYDRATE [Concomitant]
     Active Substance: CARBIDOPA
     Dosage: 25 MG, 7QD (IN 6 DIVIDED DOSES AND PRN FOR OFF?TIME)
     Route: 048
  14. ENTACAPONE. [Concomitant]
     Active Substance: ENTACAPONE
     Indication: PARKINSON^S DISEASE
     Dosage: 200 MG
     Route: 048
  15. AMANTADINE. [Suspect]
     Active Substance: AMANTADINE HYDROCHLORIDE
     Dosage: 150 MG
     Route: 048
  16. CABERGOLINE. [Concomitant]
     Active Substance: CABERGOLINE
     Indication: PARKINSON^S DISEASE
     Dosage: 1 MG
     Route: 048
  17. ISTRADEFYLLINE [Concomitant]
     Active Substance: ISTRADEFYLLINE
     Indication: PARKINSON^S DISEASE
     Dosage: 40 MG
     Route: 048
  18. CARBIDOPA MONOHYDRATE [Concomitant]
     Active Substance: CARBIDOPA
     Dosage: 516.5 MG
     Route: 048
  19. PRAMIPEXOLE HYDROCHLORIDE MONOHYDRATE [Concomitant]
     Active Substance: PRAMIPEXOLE
     Indication: PARKINSON^S DISEASE
     Dosage: 3 MG
     Route: 048
  20. ZONISAMIDE. [Concomitant]
     Active Substance: ZONISAMIDE
     Indication: PARKINSON^S DISEASE
     Dosage: 25 MG
     Route: 048
  21. ROTIGOTINE [Concomitant]
     Active Substance: ROTIGOTINE
     Indication: PARKINSON^S DISEASE
     Dosage: 27 MG
     Route: 061

REACTIONS (2)
  - Dyskinesia [Recovering/Resolving]
  - Therapeutic response shortened [Unknown]
